FAERS Safety Report 4972779-1 (Version None)
Quarter: 2006Q2

REPORT INFORMATION
  Report Type: 
  Country: None (occurrence: None)
  Receive Date: 20060410
  Receipt Date: 20060324
  Transmission Date: 20061013
  Serious: Yes (Other)
  Sender: FDA-Public Use
  Company Number: TRP_0739_2006

PATIENT
  Age: 53 Year
  Sex: Female
  Weight: 72.5755 kg

DRUGS (4)
  1. RIBASPHERE [Suspect]
     Indication: HEPATITIS C
     Dosage: 400 MG BID PO
     Route: 048
     Dates: start: 20060203, end: 20060223
  2. PEG-INTRON [Suspect]
     Indication: HEPATITIS C
     Dosage: DF QWK SC
     Route: 058
     Dates: start: 20060203, end: 20060223
  3. BIAXIN [Suspect]
  4. CELEXA [Concomitant]

REACTIONS (10)
  - ANAEMIA [None]
  - CELLULITIS STAPHYLOCOCCAL [None]
  - CONDITION AGGRAVATED [None]
  - CRYING [None]
  - DEPRESSION [None]
  - DYSPNOEA [None]
  - EPISTAXIS [None]
  - PLATELET COUNT DECREASED [None]
  - PYREXIA [None]
  - VISUAL DISTURBANCE [None]
